FAERS Safety Report 16421712 (Version 3)
Quarter: 2019Q3

REPORT INFORMATION
  Report Type: Report from Study
  Country: US (occurrence: US)
  Receive Date: 20190612
  Receipt Date: 20190819
  Transmission Date: 20191004
  Serious: Yes (Hospitalization)
  Sender: FDA-Public Use
  Company Number: US-BIOGEN-2019BI00749250

PATIENT
  Sex: Female

DRUGS (4)
  1. INFED [Concomitant]
     Active Substance: IRON DEXTRAN
     Route: 065
     Dates: start: 20171025
  2. TYSABRI [Suspect]
     Active Substance: NATALIZUMAB
     Indication: MULTIPLE SCLEROSIS
     Route: 065
     Dates: start: 20171025
  3. TYSABRI [Suspect]
     Active Substance: NATALIZUMAB
     Route: 042
  4. TYSABRI [Suspect]
     Active Substance: NATALIZUMAB
     Route: 065

REACTIONS (7)
  - Fatigue [Not Recovered/Not Resolved]
  - Stoma site discharge [Recovered/Resolved]
  - Gastrointestinal disorder [Unknown]
  - Bile duct obstruction [Recovered/Resolved]
  - Asthenia [Unknown]
  - Stoma site cellulitis [Recovered/Resolved]
  - Nausea [Unknown]

NARRATIVE: CASE EVENT DATE: 2019
